FAERS Safety Report 5355422-1 (Version None)
Quarter: 2007Q2

REPORT INFORMATION
  Report Type: 
  Country: None (occurrence: None)
  Receive Date: 20070613
  Receipt Date: 20070604
  Transmission Date: 20071010
  Serious: Yes (Hospitalization)
  Sender: FDA-Public Use
  Company Number: AU-AMGEN-US224222

PATIENT
  Sex: Female

DRUGS (4)
  1. PANITUMUMAB [Suspect]
     Indication: COLORECTAL CANCER
     Route: 042
     Dates: start: 20070110
  2. IRINOTECAN HCL [Suspect]
     Route: 065
  3. FOLINIC ACID [Suspect]
     Route: 065
  4. FLUOROURACIL [Suspect]
     Route: 065

REACTIONS (1)
  - PULMONARY EMBOLISM [None]
